FAERS Safety Report 8595817-6 (Version None)
Quarter: 2012Q3

REPORT INFORMATION
  Report Type: 
  Country: None (occurrence: None)
  Receive Date: 20120815
  Receipt Date: 20120806
  Transmission Date: 20120928
  Serious: Yes (Death, Hospitalization)
  Sender: FDA-Public Use
  Company Number: CO-ROCHE-1098914

PATIENT
  Age: 77 Year
  Sex: Male
  Weight: 73.2 kg

DRUGS (11)
  1. ESCITALOPRAM [Concomitant]
     Dates: start: 20120625
  2. NEURONTIN [Concomitant]
     Dates: start: 20120625
  3. LISINOPRIL [Concomitant]
  4. ENOXAPARIN SODIUM [Suspect]
     Indication: PRODUCT USED FOR UNKNOWN INDICATION
     Dates: start: 20120730
  5. OXYCODONE [Concomitant]
     Dates: start: 20120625
  6. TRAMADOL HCL [Concomitant]
     Dates: start: 20120625
  7. INDAPAMIDE [Concomitant]
     Dates: start: 19971115
  8. OMEPRAZOLE [Concomitant]
     Dates: start: 20120720
  9. BUSCAPINA [Concomitant]
     Dates: start: 20120724
  10. ZELBORAF [Suspect]
     Indication: MALIGNANT MELANOMA
     Dosage: DATE OF LAST DOSE 04/AUG/2012
     Route: 048
     Dates: start: 20120731, end: 20120805
  11. CARVEDILOL [Concomitant]
     Dates: start: 19971115

REACTIONS (1)
  - CEREBRAL HAEMORRHAGE [None]
